FAERS Safety Report 24395320 (Version 2)
Quarter: 2024Q4

REPORT INFORMATION
  Report Type: Spontaneous
  Country: FR (occurrence: FR)
  Receive Date: 20241004
  Receipt Date: 20241010
  Transmission Date: 20250114
  Serious: Yes (Other)
  Sender: AUROBINDO
  Company Number: FR-AUROBINDO-AUR-APL-2024-047394

PATIENT
  Age: 54 Year
  Sex: Female

DRUGS (6)
  1. DOXORUBICIN [Suspect]
     Active Substance: DOXORUBICIN
     Indication: Adult T-cell lymphoma/leukaemia
     Dosage: SIX ROUNDS OF CHEMOTHERAPY
     Route: 065
     Dates: start: 202112, end: 202206
  2. PREDNISONE [Suspect]
     Active Substance: PREDNISONE
     Indication: Adult T-cell lymphoma/leukaemia
     Dosage: SIX ROUNDS OF CHEMOTHERAPY
     Route: 065
     Dates: start: 202112, end: 202206
  3. CYCLOPHOSPHAMIDE [Suspect]
     Active Substance: CYCLOPHOSPHAMIDE
     Indication: Adult T-cell lymphoma/leukaemia
     Dosage: SIX ROUNDS OF CHEMOTHERAPY
     Route: 065
     Dates: start: 202112, end: 202206
  4. ETOPOSIDE [Suspect]
     Active Substance: ETOPOSIDE
     Indication: Adult T-cell lymphoma/leukaemia
     Dosage: SIX ROUNDS OF CHEMOTHERAPY
     Route: 065
     Dates: start: 202112, end: 202206
  5. METHOTREXATE [Suspect]
     Active Substance: METHOTREXATE
     Indication: Adult T-cell lymphoma/leukaemia
     Dosage: TWO ROUNDS (HIGH-DOSE)
     Route: 065
     Dates: start: 202112, end: 202206
  6. VINCRISTINE [Suspect]
     Active Substance: VINCRISTINE
     Indication: Adult T-cell lymphoma/leukaemia
     Dosage: SIX ROUNDS OF CHEMOTHERAPY
     Route: 065
     Dates: start: 202112, end: 202206

REACTIONS (2)
  - Malignant neoplasm progression [Unknown]
  - Drug ineffective [Unknown]
